FAERS Safety Report 19263087 (Version 1)
Quarter: 2021Q2

REPORT INFORMATION
  Report Type: Spontaneous
  Country: DE (occurrence: DE)
  Receive Date: 20210517
  Receipt Date: 20210517
  Transmission Date: 20210717
  Serious: Yes (Hospitalization)
  Sender: FDA-Public Use
  Company Number: DE-AMGEN-DEUSP2021072705

PATIENT
  Age: 67 Year
  Sex: Female

DRUGS (3)
  1. PEMBROLIZUMAB. [Suspect]
     Active Substance: PEMBROLIZUMAB
     Indication: PRODUCT USED FOR UNKNOWN INDICATION
     Dosage: 200 MG, CYCLIC ((200 MG) D1 Q21D)
     Route: 065
     Dates: start: 202010, end: 202101
  2. DENOSUMAB [Suspect]
     Active Substance: DENOSUMAB
     Indication: PRODUCT USED FOR UNKNOWN INDICATION
     Dosage: 120 MILLIGRAM, EVERY 28 DAYS
     Route: 058
     Dates: end: 202010
  3. TALAZOPARIB. [Suspect]
     Active Substance: TALAZOPARIB
     Indication: PRODUCT USED FOR UNKNOWN INDICATION
     Dosage: 1 MG, DAILY (2 CYCLES)
     Route: 048
     Dates: start: 202009, end: 202010

REACTIONS (3)
  - General physical health deterioration [Unknown]
  - Neoplasm progression [Unknown]
  - Anaemia [Unknown]

NARRATIVE: CASE EVENT DATE: 202010
